FAERS Safety Report 18395336 (Version 1)
Quarter: 2020Q4

REPORT INFORMATION
  Report Type: Spontaneous
  Country: DE (occurrence: DE)
  Receive Date: 20201017
  Receipt Date: 20201017
  Transmission Date: 20210114
  Serious: Yes (Other)
  Sender: FDA-Public Use
  Company Number: DE-AUROBINDO-AUR-APL-2019-055438

PATIENT
  Age: 72 Year
  Sex: Male

DRUGS (14)
  1. LEVOFLOXACIN. [Suspect]
     Active Substance: LEVOFLOXACIN
     Indication: KLEBSIELLA INFECTION
     Dosage: UNK
     Route: 061
  2. LEVOFLOXACIN. [Suspect]
     Active Substance: LEVOFLOXACIN
     Indication: KERATITIS BACTERIAL
     Dosage: UNK
     Route: 061
  3. CYCLOPENTOLATE. [Suspect]
     Active Substance: CYCLOPENTOLATE
     Indication: KERATITIS BACTERIAL
     Dosage: UNK
     Route: 061
  4. CYCLOPENTOLATE. [Suspect]
     Active Substance: CYCLOPENTOLATE
     Indication: KLEBSIELLA INFECTION
     Dosage: UNK
     Route: 061
  5. GRAMICIDIN;NEOMYCIN [Suspect]
     Active Substance: GRAMICIDIN\NEOMYCIN SULFATE
     Indication: KLEBSIELLA INFECTION
  6. GRAMICIDIN;NEOMYCIN;POLYMYXIN B [Suspect]
     Active Substance: GRAMICIDIN\NEOMYCIN\POLYMYXIN B SULFATE
     Indication: KERATITIS BACTERIAL
     Dosage: UNK
     Route: 065
  7. PHENYLEPHRINE [Suspect]
     Active Substance: PHENYLEPHRINE HYDROCHLORIDE
     Indication: KERATITIS BACTERIAL
     Dosage: UNK
     Route: 061
  8. PHENYLEPHRINE [Suspect]
     Active Substance: PHENYLEPHRINE HYDROCHLORIDE
     Indication: KLEBSIELLA INFECTION
     Dosage: UNK
     Route: 061
  9. MOXIFLOXACIN. [Suspect]
     Active Substance: MOXIFLOXACIN
     Indication: KERATITIS BACTERIAL
     Dosage: UNK
     Route: 048
  10. GRAMICIDIN;NEOMYCIN;POLYMYXIN B [Suspect]
     Active Substance: GRAMICIDIN\NEOMYCIN\POLYMYXIN B SULFATE
     Indication: KLEBSIELLA INFECTION
     Dosage: UNK
     Route: 065
  11. PREDNISOLONE. [Suspect]
     Active Substance: PREDNISOLONE
     Indication: KLEBSIELLA INFECTION
     Dosage: UNK
     Route: 048
  12. PREDNISOLONE. [Suspect]
     Active Substance: PREDNISOLONE
     Indication: KERATITIS BACTERIAL
     Dosage: UNK
     Route: 065
  13. MOXIFLOXACIN. [Suspect]
     Active Substance: MOXIFLOXACIN
     Indication: KLEBSIELLA INFECTION
     Dosage: UNK
     Route: 065
  14. GRAMICIDIN;NEOMYCIN [Suspect]
     Active Substance: GRAMICIDIN\NEOMYCIN SULFATE
     Indication: KERATITIS BACTERIAL
     Dosage: UNK
     Route: 050

REACTIONS (1)
  - Drug ineffective [Unknown]
